FAERS Safety Report 13268205 (Version 3)
Quarter: 2017Q2

REPORT INFORMATION
  Report Type: Spontaneous
  Country: JP (occurrence: JP)
  Receive Date: 20170224
  Receipt Date: 20170404
  Transmission Date: 20170830
  Serious: Yes (Other)
  Sender: FDA-Public Use
  Company Number: JP-PFIZER INC-2017075767

PATIENT
  Age: 80 Year
  Sex: Female
  Weight: 37.3 kg

DRUGS (8)
  1. TAXOL [Concomitant]
     Active Substance: PACLITAXEL
     Dosage: 90 MG, SINGLE
     Dates: start: 20170203, end: 20170203
  2. TAXOL [Concomitant]
     Active Substance: PACLITAXEL
     Dosage: 90 MG, SINGLE
     Dates: start: 20170120, end: 20170120
  3. TAXOL [Concomitant]
     Active Substance: PACLITAXEL
     Dosage: 90 MG, SINGLE
     Dates: start: 20170127, end: 20170127
  4. GASTER [Concomitant]
     Active Substance: FAMOTIDINE
     Indication: NEOPLASM MALIGNANT
     Dosage: 20 MG, 1X/DAY
     Route: 041
  5. PACLITAXEL 100MG/16.7ML HOSPIRA [Suspect]
     Active Substance: PACLITAXEL
     Indication: GASTRIC CANCER
     Dosage: 85 MG, 1X/DAY
     Route: 041
     Dates: start: 20170216
  6. NEOMALLERMIN [Concomitant]
     Active Substance: DEXCHLORPHENIRAMINE MALEATE
     Indication: NEOPLASM MALIGNANT
     Dosage: 6 MG, 1X/DAY
     Route: 048
     Dates: start: 20170120
  7. DECADRON [Concomitant]
     Active Substance: DEXAMETHASONE
     Indication: NEOPLASM MALIGNANT
     Dosage: 6.6 MG, 1X/DAY
     Route: 041
  8. ALOXI [Concomitant]
     Active Substance: PALONOSETRON HYDROCHLORIDE
     Indication: NEOPLASM MALIGNANT
     Dosage: 0.75 MG, 1X/DAY
     Route: 041

REACTIONS (3)
  - Loss of consciousness [Recovered/Resolved]
  - Back pain [Recovered/Resolved]
  - Flushing [Recovered/Resolved]

NARRATIVE: CASE EVENT DATE: 20170216
